FAERS Safety Report 9502899 (Version 2)
Quarter: 2013Q4

REPORT INFORMATION
  Report Type: Spontaneous
  Country: GB (occurrence: GB)
  Receive Date: 20130906
  Receipt Date: 20131217
  Transmission Date: 20140711
  Serious: Yes (Other)
  Sender: FDA-Public Use
  Company Number: GB-TEVA-429621ISR

PATIENT
  Age: 78 Year
  Sex: Male

DRUGS (2)
  1. WARFARIN [Suspect]
     Dosage: 2 X 3MG
  2. PAINKILLER [Concomitant]

REACTIONS (6)
  - Alopecia [Unknown]
  - Eye haemorrhage [Unknown]
  - Mood swings [Unknown]
  - Vision blurred [Unknown]
  - Hot flush [Unknown]
  - Petechiae [Unknown]
